FAERS Safety Report 17420049 (Version 1)
Quarter: 2020Q1

REPORT INFORMATION
  Report Type: Spontaneous
  Country: US (occurrence: US)
  Receive Date: 20200214
  Receipt Date: 20200214
  Transmission Date: 20200409
  Serious: No
  Sender: FDA-Public Use
  Company Number: US-PFIZER INC-2020063612

PATIENT
  Sex: Female

DRUGS (1)
  1. XELJANZ [Suspect]
     Active Substance: TOFACITINIB CITRATE
     Dosage: UNK UNK, ALTERNATE DAY (TAKING THEM  ^ONE DAY AND ANOTHER^)

REACTIONS (4)
  - Dysarthria [Unknown]
  - Intentional product misuse [Unknown]
  - Burning sensation [Unknown]
  - Arthralgia [Unknown]
